FAERS Safety Report 6408378-4 (Version None)
Quarter: 2009Q4

REPORT INFORMATION
  Report Type: 
  Country: None (occurrence: None)
  Receive Date: 20091019
  Receipt Date: 20040108
  Transmission Date: 20100525
  Serious: Yes (Hospitalization)
  Sender: FDA-Public Use
  Company Number: 2009008999

PATIENT

DRUGS (3)
  1. ACTIQ [Suspect]
     Indication: ADDISON'S DISEASE
     Dosage: 600 MCG, BU
     Route: 002
  2. ACTIQ [Suspect]
     Indication: HEADACHE
     Dosage: 600 MCG, BU
     Route: 002
  3. VICODIN [Concomitant]

REACTIONS (1)
  - HOSPITALISATION [None]
